FAERS Safety Report 13330301 (Version 1)
Quarter: 2017Q1

REPORT INFORMATION
  Report Type: Spontaneous
  Country: US (occurrence: US)
  Receive Date: 20170314
  Receipt Date: 20170314
  Transmission Date: 20170428
  Serious: No
  Sender: FDA-Public Use
  Company Number: US-ASTRAZENECA-2017SE24195

PATIENT
  Age: 72 Year
  Sex: Female

DRUGS (14)
  1. CARVEDILOL. [Concomitant]
     Active Substance: CARVEDILOL
  2. MINOXIDIL. [Concomitant]
     Active Substance: MINOXIDIL
  3. PRAVACHOL [Concomitant]
     Active Substance: PRAVASTATIN SODIUM
  4. ARIMIDEX [Suspect]
     Active Substance: ANASTROZOLE
     Route: 048
  5. FASLODEX [Suspect]
     Active Substance: FULVESTRANT
     Dosage: 500.0MG UNKNOWN
     Route: 030
     Dates: start: 20161003, end: 20161019
  6. AMLODIPINE [Concomitant]
     Active Substance: AMLODIPINE BESYLATE
  7. MULTIVITAMIN [Concomitant]
     Active Substance: VITAMINS
  8. FASLODEX [Suspect]
     Active Substance: FULVESTRANT
     Dosage: 500.0MG UNKNOWN
     Route: 030
     Dates: start: 20161102
  9. TAMOXIFEN [Suspect]
     Active Substance: TAMOXIFEN
     Route: 048
  10. VITAMIN D [Concomitant]
     Active Substance: CHOLECALCIFEROL
  11. IBRANCE [Suspect]
     Active Substance: PALBOCICLIB
     Route: 048
  12. BENAZEPRIL [Concomitant]
     Active Substance: BENAZEPRIL HYDROCHLORIDE
  13. GLIPIZIDE. [Concomitant]
     Active Substance: GLIPIZIDE
  14. ONDANSETRON [Concomitant]
     Active Substance: ONDANSETRON

REACTIONS (3)
  - Nausea [Unknown]
  - Drug intolerance [Unknown]
  - Dysgeusia [Unknown]
